FAERS Safety Report 5123286-7 (Version None)
Quarter: 2006Q4

REPORT INFORMATION
  Report Type: 
  Country: None (occurrence: None)
  Receive Date: 20061009
  Receipt Date: 20061002
  Transmission Date: 20070319
  Serious: Yes (Other)
  Sender: FDA-Public Use
  Company Number: GB-GLAXOSMITHKLINE-B0440603A

PATIENT
  Age: 45 Year
  Sex: Female

DRUGS (7)
  1. SALBUTAMOL [Suspect]
     Indication: ASTHMA
     Route: 042
  2. SALBUTAMOL [Suspect]
     Route: 055
  3. PREDNISONE [Concomitant]
     Dosage: 15MG SEE DOSAGE TEXT
     Route: 065
  4. FLUIDS [Concomitant]
     Route: 065
  5. OXYGEN [Concomitant]
     Route: 065
  6. HYDROCORTISONE [Concomitant]
     Dosage: 500MG SEE DOSAGE TEXT
     Route: 065
  7. AMINOPHYLLINE [Concomitant]
     Route: 065

REACTIONS (4)
  - GLYCOSURIA [None]
  - HYPERGLYCAEMIA [None]
  - KETOACIDOSIS [None]
  - KETOSIS [None]
